FAERS Safety Report 6640789-4 (Version None)
Quarter: 2010Q1

REPORT INFORMATION
  Report Type: 
  Country: None (occurrence: None)
  Receive Date: 20100318
  Receipt Date: 20100308
  Transmission Date: 20100710
  Serious: Yes (Other)
  Sender: FDA-Public Use
  Company Number: US-PFIZER INC-2009287459

PATIENT
  Sex: Female

DRUGS (1)
  1. MEDROXYPROGESTERONE ACETATE [Suspect]
     Dosage: 20 MG, 4X/DAY
     Route: 048
     Dates: start: 20090101

REACTIONS (7)
  - ALOPECIA [None]
  - CONFUSIONAL STATE [None]
  - CONSTIPATION [None]
  - FATIGUE [None]
  - INCORRECT DOSE ADMINISTERED [None]
  - MALAISE [None]
  - OSTEOPOROSIS [None]
